FAERS Safety Report 9134025 (Version 1)
Quarter: 2013Q1

REPORT INFORMATION
  Report Type: Spontaneous
  Country: US (occurrence: US)
  Receive Date: 20130304
  Receipt Date: 20130304
  Transmission Date: 20140127
  Serious: No
  Sender: FDA-Public Use
  Company Number: US-009507513-1303USA000589

PATIENT
  Age: 20 Year
  Sex: Female
  Weight: 63.49 kg

DRUGS (1)
  1. IMPLANON [Suspect]
     Indication: CONTRACEPTION
     Dosage: EVERY 3 YEARS
     Route: 059
     Dates: start: 20120724

REACTIONS (7)
  - Hormone level abnormal [Unknown]
  - Muscle spasms [Unknown]
  - Vision blurred [Unknown]
  - Breast tenderness [Unknown]
  - Abdominal pain [Unknown]
  - Metrorrhagia [Unknown]
  - Amenorrhoea [Unknown]
